FAERS Safety Report 7962731-6 (Version None)
Quarter: 2011Q4

REPORT INFORMATION
  Report Type: 
  Country: None (occurrence: None)
  Receive Date: 20111207
  Receipt Date: 20111128
  Transmission Date: 20120403
  Serious: Yes (Hospitalization)
  Sender: FDA-Public Use
  Company Number: PHHO2011GB18009

PATIENT
  Sex: Male

DRUGS (3)
  1. ATENOLOL [Concomitant]
     Indication: HYPERTENSION
     Dosage: UNK
     Dates: start: 19970101
  2. IMATINIB MESYLATE [Suspect]
     Indication: CHRONIC MYELOID LEUKAEMIA
     Dosage: 1600 MG, QD
     Route: 048
     Dates: start: 20000911
  3. LANSOPRAZOLE [Concomitant]
     Indication: DYSPEPSIA
     Dosage: 30 MG, QD
     Route: 048
     Dates: start: 20050101

REACTIONS (3)
  - IMPAIRED GASTRIC EMPTYING [None]
  - DRUG DISPENSING ERROR [None]
  - CONSTIPATION [None]
